FAERS Safety Report 8612103-6 (Version None)
Quarter: 2012Q3

REPORT INFORMATION
  Report Type: 
  Country: None (occurrence: None)
  Receive Date: 20120822
  Receipt Date: 20120814
  Transmission Date: 20120928
  Serious: Yes (Hospitalization)
  Sender: FDA-Public Use
  Company Number: US-PURDUE-USA-2012-0091580

PATIENT
  Sex: Female

DRUGS (2)
  1. OXYCONTIN [Suspect]
     Indication: PRODUCT USED FOR UNKNOWN INDICATION
     Dosage: 40 MG, DAILY
     Route: 048
  2. OXYCONTIN [Suspect]
     Dosage: 20 MG, BID
     Route: 048
     Dates: start: 20120101

REACTIONS (5)
  - HOSPITALISATION [None]
  - GASTROINTESTINAL DISORDER [None]
  - HYPOKALAEMIA [None]
  - DIABETES MELLITUS [None]
  - GASTROINTESTINAL DISORDER THERAPY [None]
